FAERS Safety Report 8121762-6 (Version None)
Quarter: 2012Q1

REPORT INFORMATION
  Report Type: 
  Country: None (occurrence: None)
  Receive Date: 20120207
  Receipt Date: 20120207
  Transmission Date: 20120608
  Serious: Yes (Disabling)
  Sender: FDA-Public Use
  Company Number: None

PATIENT
  Age: 53 Year
  Sex: Male
  Weight: 77.1115 kg

DRUGS (3)
  1. LYRICA [Suspect]
     Indication: PAIN
     Dosage: 75 MG / 150 MG 1 TAB MORN / 1 TAB EVE
     Dates: start: 20120101
  2. LYRICA [Suspect]
     Indication: PAIN
     Dosage: 75 MG / 150 MG 1 TAB MORN / 1 TAB EVE
     Dates: start: 20111201
  3. GABAPENTIN [Suspect]
     Indication: FIBROMYALGIA
     Dosage: 300 MG 1 TAB 3X'S DAILY

REACTIONS (1)
  - DYSGEUSIA [None]
